FAERS Safety Report 4503926-3 (Version None)
Quarter: 2004Q4

REPORT INFORMATION
  Report Type: 
  Country: None (occurrence: None)
  Receive Date: 20040928
  Receipt Date: 20040617
  Transmission Date: 20050328
  Serious: No
  Sender: FDA-Public Use
  Company Number: 04P-163-0264235-00

PATIENT
  Sex: Female

DRUGS (7)
  1. HUMIRA [Suspect]
     Indication: RHEUMATOID ARTHRITIS
     Dosage: 40 MG, 1 IN 2 WK, SUBCUTANEOUS
     Route: 058
     Dates: start: 20030101
  2. METHOTREXATE [Concomitant]
  3. ROVEFOXIB [Concomitant]
  4. FOLIC ACID [Concomitant]
  5. VITAMIN B COMPLEX CAP [Concomitant]
  6. CALCIUM [Concomitant]
  7. ESTROVEN [Concomitant]

REACTIONS (2)
  - DRUG INEFFECTIVE [None]
  - EYE REDNESS [None]
